FAERS Safety Report 7752435-7 (Version None)
Quarter: 2011Q3

REPORT INFORMATION
  Report Type: 
  Country: None (occurrence: None)
  Receive Date: 20110915
  Receipt Date: 20110913
  Transmission Date: 20111222
  Serious: Yes (Death)
  Sender: FDA-Public Use
  Company Number: PHFR2011GB01515

PATIENT
  Sex: Male

DRUGS (4)
  1. PROCYCLIDINE HYDROCHLORIDE 2MG TAB [Concomitant]
     Dosage: 15 MG
     Dates: start: 19940913
  2. SULPIRIDE [Concomitant]
     Dosage: 200 MG, QID
     Dates: start: 19940913
  3. CITALOPRAM HYDROBROMIDE [Concomitant]
     Dosage: 40 MG
     Dates: start: 20100106
  4. CLOZAPINE [Suspect]
     Indication: SCHIZOPHRENIA
     Dosage: 400 MG, UNK
     Route: 048
     Dates: start: 20090811

REACTIONS (10)
  - RED CELL DISTRIBUTION WIDTH INCREASED [None]
  - MEAN CELL VOLUME ABNORMAL [None]
  - MONOCYTE COUNT INCREASED [None]
  - BLOOD ALBUMIN DECREASED [None]
  - HAEMATOCRIT DECREASED [None]
  - BLOOD GLUCOSE INCREASED [None]
  - NEUTROPHIL COUNT INCREASED [None]
  - CARDIAC ARREST [None]
  - MEAN CELL HAEMOGLOBIN DECREASED [None]
  - WHITE BLOOD CELL COUNT INCREASED [None]
